FAERS Safety Report 11404419 (Version 2)
Quarter: 2015Q4

REPORT INFORMATION
  Report Type: Spontaneous
  Country: US (occurrence: US)
  Receive Date: 20150821
  Receipt Date: 20151201
  Transmission Date: 20160304
  Serious: Yes (Hospitalization, Disabling)
  Sender: FDA-Public Use
  Company Number: US-BAYER-2015-404530

PATIENT
  Age: 24 Year
  Sex: Female
  Weight: 56.69 kg

DRUGS (3)
  1. MIRENA [Suspect]
     Active Substance: LEVONORGESTREL
     Indication: CONTRACEPTION
     Dosage: 20 MCG/24HR, CONT
     Route: 015
     Dates: start: 201501, end: 20150223
  2. ZYRTEC [Concomitant]
     Active Substance: CETIRIZINE HYDROCHLORIDE
     Dosage: 10 MG, QD
     Route: 048
  3. FLUVIRIN NOS [Concomitant]
     Active Substance: INFLUENZA VIRUS VACCINE
     Dosage: 45 MCG (15MCG X 3) 0.5 ML

REACTIONS (4)
  - Uterine perforation [None]
  - Physical disability [None]
  - Deformity [None]
  - Pain [None]

NARRATIVE: CASE EVENT DATE: 20150223
